FAERS Safety Report 10537095 (Version 1)
Quarter: 2014Q4

REPORT INFORMATION
  Report Type: Report from Study
  Country: JP (occurrence: JP)
  Receive Date: 20141022
  Receipt Date: 20141022
  Transmission Date: 20150529
  Serious: Yes (Hospitalization, Other)
  Sender: FDA-Public Use
  Company Number: JP-GILEAD-2014-0119516

PATIENT
  Age: 32 Year
  Sex: Male

DRUGS (8)
  1. PREZISTANAIVE [Concomitant]
     Active Substance: DARUNAVIR
     Dosage: 800 MG, QD
     Route: 048
     Dates: start: 20120425, end: 20130728
  2. NORVIR [Concomitant]
     Active Substance: RITONAVIR
     Dosage: 300 MG, QD
     Route: 048
     Dates: start: 20130731, end: 20140213
  3. NORVIR [Concomitant]
     Active Substance: RITONAVIR
     Indication: HIV INFECTION
     Dosage: 300 MG, QD
     Route: 048
     Dates: start: 20140219
  4. PREZISTANAIVE [Concomitant]
     Active Substance: DARUNAVIR
     Indication: HIV INFECTION
     Dosage: 800 MG, QD
     Route: 048
     Dates: start: 20140219
  5. PREZISTANAIVE [Concomitant]
     Active Substance: DARUNAVIR
     Dosage: 800 MG, QD
     Route: 048
     Dates: start: 20130731, end: 20140213
  6. EMTRICITABINE/TENOFOVIR DISOPROXIL FUMARATE [Suspect]
     Active Substance: EMTRICITABINE\TENOFOVIR DISOPROXIL
     Dosage: 1 DF, QD
     Route: 048
     Dates: start: 20120425, end: 20130728
  7. EMTRICITABINE/TENOFOVIR DISOPROXIL FUMARATE [Suspect]
     Active Substance: EMTRICITABINE\TENOFOVIR DISOPROXIL
     Indication: HIV INFECTION
     Dosage: 1 DF, QD
     Route: 048
     Dates: start: 20130731, end: 20140213
  8. NORVIR [Concomitant]
     Active Substance: RITONAVIR
     Dosage: 300 MG, QD
     Route: 048
     Dates: start: 20120425, end: 20140728

REACTIONS (2)
  - Fracture [Recovered/Resolved]
  - Appendicitis [Not Recovered/Not Resolved]

NARRATIVE: CASE EVENT DATE: 201307
